FAERS Safety Report 19200971 (Version 1)
Quarter: 2021Q2

REPORT INFORMATION
  Report Type: Spontaneous
  Country: US (occurrence: US)
  Receive Date: 20210430
  Receipt Date: 20210430
  Transmission Date: 20210717
  Serious: No
  Sender: FDA-Public Use
  Company Number: None

PATIENT
  Age: 23 Year
  Sex: Female
  Weight: 96.3 kg

DRUGS (1)
  1. NEXPLANON [Suspect]
     Active Substance: ETONOGESTREL
     Indication: CONTRACEPTION
     Dosage: ?          OTHER FREQUENCY:Q 3 YEARS;?
     Route: 059
     Dates: start: 20210407, end: 20210429

REACTIONS (1)
  - Implant site infection [None]

NARRATIVE: CASE EVENT DATE: 20210429
